FAERS Safety Report 5327644-7 (Version None)
Quarter: 2007Q2

REPORT INFORMATION
  Report Type: 
  Country: None (occurrence: None)
  Receive Date: 20070517
  Receipt Date: 20070514
  Transmission Date: 20071010
  Serious: Yes (Other)
  Sender: FDA-Public Use
  Company Number: A0651475A

PATIENT
  Sex: Male

DRUGS (2)
  1. PAXIL [Suspect]
     Indication: DEPRESSION
     Route: 048
  2. PROZAC [Suspect]
     Indication: DEPRESSION
     Route: 065

REACTIONS (4)
  - ADVERSE EVENT [None]
  - AGGRESSION [None]
  - HOMICIDE [None]
  - SUICIDAL IDEATION [None]
